FAERS Safety Report 8286171 (Version 2)
Quarter: 2013Q2

REPORT INFORMATION
  Report Type: Report from Study
  Country: VE (occurrence: VE)
  Receive Date: 20111213
  Receipt Date: 20130508
  Transmission Date: 20140414
  Serious: Yes (Death, Hospitalization, Other)
  Sender: FDA-Public Use
  Company Number: PHHY2011VE107873

PATIENT
  Age: 62 Year
  Sex: Female

DRUGS (1)
  1. ACLASTA [Suspect]
     Indication: OSTEOPOROSIS
     Dosage: 5 MG, (5 MG/ML ANNUALLY)
     Route: 042
     Dates: start: 2011

REACTIONS (3)
  - Respiratory arrest [Fatal]
  - Systemic lupus erythematosus [Not Recovered/Not Resolved]
  - Feeling abnormal [Unknown]
